FAERS Safety Report 11926470 (Version 8)
Quarter: 2016Q4

REPORT INFORMATION
  Report Type: Spontaneous
  Country: US (occurrence: US)
  Receive Date: 20160119
  Receipt Date: 20161207
  Transmission Date: 20170206
  Serious: Yes (Life-Threatening, Congenital Anomaly, Other)
  Sender: FDA-Public Use
  Company Number: PHEH2016US001416

PATIENT
  Sex: Female

DRUGS (3)
  1. ZOFRAN ODT [Suspect]
     Active Substance: ONDANSETRON HYDROCHLORIDE
     Indication: FOETAL EXPOSURE DURING PREGNANCY
     Dosage: MOTHER^S DOSE: 8 MG, Q8H
     Route: 064
  2. ONDANSETRONE DR. REDDY^S [Suspect]
     Active Substance: ONDANSETRON HYDROCHLORIDE
     Indication: FOETAL EXPOSURE DURING PREGNANCY
     Dosage: MOTHER^S DOSE: 8 MG, UNK
     Route: 064
  3. ONDANSETRON [Suspect]
     Active Substance: ONDANSETRON
     Indication: FOETAL EXPOSURE DURING PREGNANCY
     Dosage: MOTHER^S DOSE: 8 MG, UNK
     Route: 064

REACTIONS (26)
  - Cleft palate [Unknown]
  - Injury [Unknown]
  - Anaemia neonatal [Unknown]
  - Otorrhoea [Unknown]
  - Chronic tonsillitis [Unknown]
  - Emotional distress [Unknown]
  - Speech disorder [Unknown]
  - Velopharyngeal incompetence [Unknown]
  - Neonatal pneumonia [Unknown]
  - Deafness [Unknown]
  - Pain [Unknown]
  - Anhedonia [Unknown]
  - Procedural vomiting [Unknown]
  - Tonsillar hypertrophy [Unknown]
  - Cognitive disorder [Unknown]
  - Constipation [Unknown]
  - Hypoxia [Unknown]
  - Otitis media chronic [Unknown]
  - Bronchiolitis [Unknown]
  - Procedural nausea [Unknown]
  - Anxiety [Unknown]
  - Nasal discharge discolouration [Unknown]
  - Sinus tachycardia [Unknown]
  - Congenital anomaly [Unknown]
  - Foetal exposure during pregnancy [Unknown]
  - Gastrooesophageal reflux disease [Unknown]
